FAERS Safety Report 4297179-1 (Version None)
Quarter: 2004Q1

REPORT INFORMATION
  Report Type: 
  Country: None (occurrence: None)
  Receive Date: 20040213
  Receipt Date: 20040209
  Transmission Date: 20041129
  Serious: Yes (Death)
  Sender: FDA-Public Use
  Company Number: US-JNJFOC-20031204860

PATIENT
  Age: 45 Year
  Sex: Male

DRUGS (7)
  1. DURAGESIC [Suspect]
     Indication: PAIN
     Dosage: 600 UG/HR, 1 IN 72 HOUR, TRANSDERMAL; 600 UG/HR, 1 IN 48 HOUR, TRANSDERMAL
     Route: 062
     Dates: end: 20031209
  2. DURAGESIC [Suspect]
     Indication: PAIN
     Dosage: 600 UG/HR, 1 IN 72 HOUR, TRANSDERMAL; 600 UG/HR, 1 IN 48 HOUR, TRANSDERMAL
     Route: 062
     Dates: start: 20000101
  3. GABAPENTIN (GABAPENTIN) CAPSULES [Concomitant]
  4. DIAZEPAM (DIAZEPAM)TABLETS [Concomitant]
  5. TRIZIVIR [Concomitant]
  6. TENOFOVIR (TENOFOVIR) [Concomitant]
  7. MS CONTIN (MORPHINE SULFATE) TABLETS [Concomitant]

REACTIONS (3)
  - CARDIAC DEATH [None]
  - COMPLETED SUICIDE [None]
  - DRUG SCREEN POSITIVE [None]
